FAERS Safety Report 6060565-3 (Version None)
Quarter: 2009Q1

REPORT INFORMATION
  Report Type: 
  Country: None (occurrence: None)
  Receive Date: 20090130
  Receipt Date: 20090130
  Transmission Date: 20090719
  Serious: Yes (Other)
  Sender: FDA-Public Use
  Company Number: None

PATIENT
  Age: 69 Year
  Sex: Male
  Weight: 95.2554 kg

DRUGS (1)
  1. ZOLPIDEM [Suspect]
     Indication: INSOMNIA
     Dosage: 1 10 MG TABLET ONCE BY MOUTH
     Route: 048
     Dates: start: 20080831

REACTIONS (6)
  - AGITATION [None]
  - CONDITION AGGRAVATED [None]
  - HALLUCINATION [None]
  - INSOMNIA [None]
  - PARANOIA [None]
  - THINKING ABNORMAL [None]
